FAERS Safety Report 12371877 (Version 1)
Quarter: 2016Q2

REPORT INFORMATION
  Report Type: Spontaneous
  Country: US (occurrence: US)
  Receive Date: 20160516
  Receipt Date: 20160516
  Transmission Date: 20160815
  Serious: Yes (Other)
  Sender: FDA-Public Use
  Company Number: US-MDT-ADR-2016-00075

PATIENT
  Age: 60 Year
  Sex: Male

DRUGS (4)
  1. DILAUDID [Suspect]
     Active Substance: HYDROMORPHONE HYDROCHLORIDE
     Dosage: 2.6 MG/DAY
     Route: 037
  2. CLONIDINE. [Suspect]
     Active Substance: CLONIDINE
     Dosage: 64.1 MCG/DAY
     Route: 037
  3. FENTANYL. [Suspect]
     Active Substance: FENTANYL
     Route: 037
  4. COMPOUNDED BACLOFEN [Suspect]
     Active Substance: BACLOFEN
     Route: 037

REACTIONS (3)
  - Hyperhidrosis [Unknown]
  - Nausea [Unknown]
  - Pain [Unknown]

NARRATIVE: CASE EVENT DATE: 20160107
